FAERS Safety Report 11291137 (Version 1)
Quarter: 2015Q3

REPORT INFORMATION
  Report Type: Spontaneous
  Country: US (occurrence: US)
  Receive Date: 20150722
  Receipt Date: 20150722
  Transmission Date: 20151125
  Serious: No
  Sender: FDA-Public Use
  Company Number: US-UNITED THERAPEUTICS-UNT-2015-004285

PATIENT
  Age: 3 Year
  Sex: Male
  Weight: 13.61 kg

DRUGS (2)
  1. REVATIO [Concomitant]
     Active Substance: SILDENAFIL CITRATE
     Indication: PRODUCT USED FOR UNKNOWN INDICATION
  2. REMODULIN [Suspect]
     Active Substance: TREPROSTINIL
     Indication: PULMONARY ARTERIAL HYPERTENSION
     Dosage: 0.099 ?G/KG/MIN, CONTINUING
     Route: 058
     Dates: start: 20131023

REACTIONS (6)
  - Gait disturbance [Unknown]
  - Hyperhidrosis [Unknown]
  - Drug dose omission [Unknown]
  - Infusion site oedema [Unknown]
  - Infusion site pain [Unknown]
  - Hypersomnia [Unknown]

NARRATIVE: CASE EVENT DATE: 20150414
